FAERS Safety Report 16414187 (Version 3)
Quarter: 2019Q2

REPORT INFORMATION
  Report Type: Spontaneous
  Country: JP (occurrence: JP)
  Receive Date: 20190611
  Receipt Date: 20190628
  Transmission Date: 20190711
  Serious: Yes (Death, Life-Threatening, Other)
  Sender: FDA-Public Use
  Company Number: JP-SAKK-2019SA155674AA

PATIENT
  Age: 68 Year
  Sex: Female
  Weight: 53 kg

DRUGS (11)
  1. PREDNISOLONE. [Suspect]
     Active Substance: PREDNISOLONE
     Indication: RHEUMATOID ARTHRITIS
     Dosage: 2 MG
     Route: 048
     Dates: start: 19920314, end: 20190603
  2. FLUNASE [FLUNISOLIDE] [Concomitant]
     Indication: RHINITIS ALLERGIC
     Route: 045
  3. FOLIAMIN [Concomitant]
     Active Substance: FOLIC ACID
     Indication: RHEUMATOID ARTHRITIS
     Dosage: 5 MG, QW
     Route: 048
  4. TRAMAL [Concomitant]
     Active Substance: TRAMADOL
     Indication: SPINAL COMPRESSION FRACTURE
     Dosage: 12.5 MG, BID
     Route: 048
     Dates: start: 201905, end: 20190603
  5. CELECOX [Concomitant]
     Active Substance: CELECOXIB
     Indication: SPINAL COMPRESSION FRACTURE
     Dosage: UNK UNK, BID
     Route: 048
     Dates: start: 201905, end: 20190603
  6. FORTEO [Concomitant]
     Active Substance: TERIPARATIDE
     Indication: SPINAL COMPRESSION FRACTURE
     Dosage: 20 UG/DAY
     Route: 058
     Dates: start: 201905, end: 20190603
  7. METHOTREXATE. [Suspect]
     Active Substance: METHOTREXATE
     Indication: RHEUMATOID ARTHRITIS
     Dosage: 8 MG, QW
     Route: 048
     Dates: start: 19910314, end: 20190603
  8. KEVZARA [Suspect]
     Active Substance: SARILUMAB
     Indication: RHEUMATOID ARTHRITIS
     Dosage: 200 MG, QOW
     Route: 058
     Dates: start: 20180605, end: 20190603
  9. ULGUT [BENEXATE HCL BETA-CYCLODEXTRIN CLATHRATE] [Concomitant]
     Indication: RHEUMATOID ARTHRITIS
     Dosage: 200 MG/DAY
     Route: 048
  10. BLOPRESS [Concomitant]
     Active Substance: CANDESARTAN CILEXETIL
     Indication: HYPERTENSION
     Dosage: 2 MG/DAY
     Route: 048
  11. MUCOSTA [Concomitant]
     Active Substance: REBAMIPIDE
     Indication: SPINAL COMPRESSION FRACTURE
     Dosage: UNK UNK, BID
     Route: 048
     Dates: start: 201905, end: 20190603

REACTIONS (12)
  - Arthritis bacterial [Fatal]
  - Condition aggravated [Unknown]
  - Bacteraemia [Fatal]
  - Disseminated intravascular coagulation [Recovered/Resolved]
  - Infectious pleural effusion [Fatal]
  - Altered state of consciousness [Unknown]
  - Joint swelling [Fatal]
  - Joint warmth [Fatal]
  - Renal impairment [Unknown]
  - Hepatic function abnormal [Unknown]
  - Bursitis [Fatal]
  - Arthralgia [Unknown]

NARRATIVE: CASE EVENT DATE: 20190603
